FAERS Safety Report 7585086-8 (Version None)
Quarter: 2011Q3

REPORT INFORMATION
  Report Type: 
  Country: None (occurrence: None)
  Receive Date: 20110701
  Receipt Date: 20110620
  Transmission Date: 20111222
  Serious: Yes (Other)
  Sender: FDA-Public Use
  Company Number: US-AMGEN-USASP2011022957

PATIENT
  Age: 55 Year
  Sex: Female
  Weight: 53.5 kg

DRUGS (4)
  1. EPOGEN [Suspect]
     Dosage: UNK
     Dates: start: 20021112
  2. EPOGEN [Suspect]
     Indication: RENAL FAILURE CHRONIC
     Dates: start: 20030101
  3. METOPROLOL TARTRATE [Concomitant]
  4. HYDRALAZINE HCL [Concomitant]

REACTIONS (6)
  - HAEMORRHAGE [None]
  - FATIGUE [None]
  - HAEMOGLOBIN DECREASED [None]
  - CERVIX CARCINOMA [None]
  - HAEMODIALYSIS [None]
  - RENAL FAILURE CHRONIC [None]
